FAERS Safety Report 7107956-7 (Version None)
Quarter: 2010Q4

REPORT INFORMATION
  Report Type: 
  Country: None (occurrence: None)
  Receive Date: 20101117
  Receipt Date: 20101108
  Transmission Date: 20110411
  Serious: Yes (Hospitalization)
  Sender: FDA-Public Use
  Company Number: DE-ASTRAZENECA-2010SE53286

PATIENT
  Age: 58 Year
  Sex: Male

DRUGS (10)
  1. SEROQUEL XR [Suspect]
     Route: 048
     Dates: start: 20100514
  2. SEROQUEL XR [Suspect]
     Route: 048
     Dates: start: 20100515, end: 20100519
  3. HALDOL [Suspect]
     Route: 048
     Dates: start: 20100501, end: 20100503
  4. HALDOL [Suspect]
     Route: 048
     Dates: start: 20100504, end: 20100512
  5. HALDOL [Suspect]
     Route: 048
     Dates: start: 20100513
  6. HALDOL [Suspect]
     Route: 048
     Dates: start: 20100514, end: 20100517
  7. FURORESE [Concomitant]
     Route: 048
  8. DELIX [Concomitant]
     Route: 048
  9. SIOFOR [Concomitant]
     Route: 048
  10. MIRTAZAPIN [Concomitant]
     Route: 048
     Dates: start: 20100424, end: 20100603

REACTIONS (2)
  - OEDEMA [None]
  - ORTHOPNOEA [None]
